FAERS Safety Report 7767522-7 (Version None)
Quarter: 2011Q3

REPORT INFORMATION
  Report Type: 
  Country: None (occurrence: None)
  Receive Date: 20110922
  Receipt Date: 20110913
  Transmission Date: 20111222
  Serious: Yes (Other)
  Sender: FDA-Public Use
  Company Number: US-JNJFOC-20110906407

PATIENT
  Sex: Female
  Weight: 58.97 kg

DRUGS (5)
  1. DURAGESIC-100 [Suspect]
     Route: 062
     Dates: end: 20070101
  2. DURAGESIC-100 [Suspect]
     Route: 062
     Dates: start: 20051001
  3. DURAGESIC-100 [Suspect]
     Route: 062
     Dates: start: 20090101
  4. DURAGESIC-100 [Suspect]
     Indication: INTERVERTEBRAL DISC PROTRUSION
     Route: 062
     Dates: start: 20070201, end: 20090101
  5. MORPHINE [Suspect]
     Indication: PRODUCT USED FOR UNKNOWN INDICATION
     Route: 065

REACTIONS (8)
  - ACCIDENT [None]
  - ROTATOR CUFF REPAIR [None]
  - PRODUCT QUALITY ISSUE [None]
  - MALAISE [None]
  - ROTATOR CUFF SYNDROME [None]
  - SCREAMING [None]
  - CONDITION AGGRAVATED [None]
  - PAIN [None]
